FAERS Safety Report 5121501-7 (Version None)
Quarter: 2006Q4

REPORT INFORMATION
  Report Type: 
  Country: None (occurrence: None)
  Receive Date: 20061006
  Receipt Date: 20060925
  Transmission Date: 20070319
  Serious: Yes (Other)
  Sender: FDA-Public Use
  Company Number: DE-JNJFOC-20060903111

PATIENT
  Age: 50 Year
  Sex: Male

DRUGS (2)
  1. TOPAMAX [Suspect]
     Indication: MIGRAINE PROPHYLAXIS
     Dosage: 6 MONTHS AGO, AT NIGHT
     Route: 048
  2. RIFUN 20 [Concomitant]
     Indication: REFLUX OESOPHAGITIS

REACTIONS (1)
  - ARRHYTHMIA SUPRAVENTRICULAR [None]
